FAERS Safety Report 11390286 (Version 1)
Quarter: 2015Q3

REPORT INFORMATION
  Report Type: Spontaneous
  Country: None (occurrence: None)
  Receive Date: 20150814
  Receipt Date: 20150814
  Transmission Date: 20151125
  Serious: Yes (Other)
  Sender: FDA-Public Use
  Company Number: None

PATIENT
  Age: 27 Year
  Sex: Female
  Weight: 64.86 kg

DRUGS (3)
  1. INVANZ [Suspect]
     Active Substance: ERTAPENEM SODIUM
     Indication: PYELONEPHRITIS
     Route: 042
     Dates: start: 20150813, end: 20150813
  2. INVANZ [Suspect]
     Active Substance: ERTAPENEM SODIUM
     Indication: NEUROGENIC BLADDER
     Route: 042
     Dates: start: 20150813, end: 20150813
  3. INVANZ [Suspect]
     Active Substance: ERTAPENEM SODIUM
     Indication: URINARY TRACT INFECTION
     Route: 042
     Dates: start: 20150813, end: 20150813

REACTIONS (2)
  - Chest pain [None]
  - Dysphagia [None]

NARRATIVE: CASE EVENT DATE: 20150813
